FAERS Safety Report 9157899 (Version 1)
Quarter: 2013Q1

REPORT INFORMATION
  Report Type: Spontaneous
  Country: JP (occurrence: JP)
  Receive Date: 20130312
  Receipt Date: 20130312
  Transmission Date: 20140127
  Serious: Yes (Other)
  Sender: FDA-Public Use
  Company Number: PHHY2013JP023320

PATIENT
  Sex: Male

DRUGS (3)
  1. NEORAL [Suspect]
     Indication: KIDNEY TRANSPLANT REJECTION
     Dosage: 200 MG, DAILY
     Route: 048
  2. CERTICAN [Suspect]
     Indication: PROPHYLAXIS AGAINST TRANSPLANT REJECTION
     Dosage: 1.5 MG, DAILY
     Route: 048
  3. MYCOPHENOLATE MOFETIL [Concomitant]
     Indication: KIDNEY TRANSPLANT REJECTION
     Route: 048

REACTIONS (2)
  - Pericardial effusion [Unknown]
  - Blood creatine increased [Unknown]
